FAERS Safety Report 6522251-2 (Version None)
Quarter: 2009Q4

REPORT INFORMATION
  Report Type: 
  Country: None (occurrence: None)
  Receive Date: 20091230
  Receipt Date: 20091221
  Transmission Date: 20100525
  Serious: Yes (Hospitalization)
  Sender: FDA-Public Use
  Company Number: LV-BRISTOL-MYERS SQUIBB COMPANY-14911473

PATIENT
  Age: 68 Year
  Sex: Female

DRUGS (6)
  1. GLUCOPHAGE [Suspect]
     Indication: TYPE 2 DIABETES MELLITUS
     Dates: start: 20081010, end: 20081016
  2. METFORMIN [Concomitant]
     Indication: TYPE 2 DIABETES MELLITUS
  3. SYMBICORT [Concomitant]
  4. VENTOLIN [Concomitant]
  5. CONCOR [Concomitant]
  6. CARDACE [Concomitant]

REACTIONS (3)
  - FACE OEDEMA [None]
  - HYPERSENSITIVITY [None]
  - URTICARIA [None]
